FAERS Safety Report 17867688 (Version 4)
Quarter: 2020Q3

REPORT INFORMATION
  Report Type: Report from Study
  Country: None (occurrence: AU)
  Receive Date: 20200605
  Receipt Date: 20200831
  Transmission Date: 20201103
  Serious: Yes (Other)
  Sender: FDA-Public Use
  Company Number: AU-ABBVIE-20K-008-3433271-00

PATIENT
  Age: 69 Year
  Sex: Male

DRUGS (4)
  1. IMBRUVICA [Suspect]
     Active Substance: IBRUTINIB
     Indication: CHRONIC LYMPHOCYTIC LEUKAEMIA
     Route: 048
     Dates: start: 20200224, end: 20200528
  2. MIZART [Concomitant]
     Active Substance: TELMISARTAN
     Indication: BLOOD PRESSURE MEASUREMENT
     Dosage: 80MGS/25MGS ONCE A DAY ORALLY
  3. TEMAZEPAM. [Concomitant]
     Active Substance: TEMAZEPAM
     Indication: INSOMNIA
  4. IMBRUVICA [Suspect]
     Active Substance: IBRUTINIB
     Dosage: 140 MG X3 DAILY
     Route: 048
     Dates: start: 20200528

REACTIONS (10)
  - Foreign body in throat [Recovered/Resolved]
  - Product dose omission issue [Unknown]
  - Blood blister [Not Recovered/Not Resolved]
  - Inappropriate schedule of product administration [Unknown]
  - Muscle spasms [Unknown]
  - Off label use [Unknown]
  - Blood count abnormal [Recovered/Resolved]
  - White blood cell count increased [Recovering/Resolving]
  - Emotional disorder [Not Recovered/Not Resolved]
  - Contusion [Unknown]

NARRATIVE: CASE EVENT DATE: 20200224
